FAERS Safety Report 6088168-5 (Version None)
Quarter: 2009Q1

REPORT INFORMATION
  Report Type: 
  Country: None (occurrence: None)
  Receive Date: 20090218
  Receipt Date: 20090206
  Transmission Date: 20090719
  Serious: Yes (Hospitalization)
  Sender: FDA-Public Use
  Company Number: 2009SP002840

PATIENT
  Age: 75 Year
  Sex: Female
  Weight: 62 kg

DRUGS (2)
  1. INTEGRILIN [Suspect]
     Indication: THROMBOSIS
     Dosage: 5.6 ML INBO IV; UNK IM; INBO
     Route: 042
     Dates: start: 20090206, end: 20090206
  2. INTEGRILIN [Suspect]
     Indication: THROMBOSIS
     Dosage: 5.6 ML INBO IV; UNK IM; INBO
     Route: 042
     Dates: start: 20090206, end: 20090206

REACTIONS (4)
  - ARTERIAL THROMBOSIS [None]
  - DRUG INEFFECTIVE [None]
  - INCORRECT ROUTE OF DRUG ADMINISTRATION [None]
  - NEOPLASM MALIGNANT [None]
